FAERS Safety Report 20525856 (Version 2)
Quarter: 2022Q2

REPORT INFORMATION
  Report Type: Spontaneous
  Country: US (occurrence: US)
  Receive Date: 20220228
  Receipt Date: 20220411
  Transmission Date: 20220720
  Serious: No
  Sender: FDA-Public Use
  Company Number: US-BEH-2022142504

PATIENT
  Age: 75 Year
  Sex: Male

DRUGS (3)
  1. HIZENTRA [Suspect]
     Active Substance: HUMAN IMMUNOGLOBULIN G
     Indication: Multifocal motor neuropathy
     Dosage: 12 GRAM, QW
     Route: 065
     Dates: start: 202112
  2. HIZENTRA [Suspect]
     Active Substance: HUMAN IMMUNOGLOBULIN G
     Dosage: 18 GRAM, QW
     Route: 065
  3. HIZENTRA [Suspect]
     Active Substance: HUMAN IMMUNOGLOBULIN G
     Dosage: 24 GRAM, QW
     Route: 065

REACTIONS (7)
  - Drug ineffective for unapproved indication [Unknown]
  - Off label use [Unknown]
  - Muscular weakness [Unknown]
  - Muscular weakness [Unknown]
  - Peroneal nerve palsy [Unknown]
  - Muscle spasms [Unknown]
  - Pain in extremity [Unknown]
